FAERS Safety Report 11679714 (Version 2)
Quarter: 2015Q4

REPORT INFORMATION
  Report Type: Spontaneous
  Country: US (occurrence: US)
  Receive Date: 20151027
  Receipt Date: 20151104
  Transmission Date: 20160304
  Serious: No
  Sender: FDA-Public Use
  Company Number: US-ELI_LILLY_AND_COMPANY-US201004007395

PATIENT
  Sex: Female

DRUGS (2)
  1. FORTEO [Suspect]
     Active Substance: TERIPARATIDE
     Dosage: 20 UG, DAILY (1/D)
  2. FORTEO [Suspect]
     Active Substance: TERIPARATIDE
     Indication: OSTEOPOROSIS
     Dosage: 20 UG, DAILY (1/D)
     Route: 065
     Dates: start: 200908

REACTIONS (7)
  - Arthralgia [Recovered/Resolved]
  - Rash [Recovering/Resolving]
  - Medication error [Unknown]
  - Sciatica [Unknown]
  - Pain in extremity [Not Recovered/Not Resolved]
  - Influenza [Recovering/Resolving]
  - Dyspnoea [Recovering/Resolving]
